FAERS Safety Report 13707780 (Version 1)
Quarter: 2017Q2

REPORT INFORMATION
  Report Type: Report from Study
  Country: US (occurrence: US)
  Receive Date: 20170630
  Receipt Date: 20170630
  Transmission Date: 20170830
  Serious: Yes (Hospitalization)
  Sender: FDA-Public Use
  Company Number: US-JNJFOC-20161210807

PATIENT
  Age: 60 Year
  Sex: Male

DRUGS (15)
  1. MULTIVITAMINS [Concomitant]
     Active Substance: VITAMINS
  2. TAMSULOSIN [Concomitant]
     Active Substance: TAMSULOSIN
  3. LORAZEPAM. [Concomitant]
     Active Substance: LORAZEPAM
  4. PRAVASTATIN. [Concomitant]
     Active Substance: PRAVASTATIN
  5. ABILIFY [Concomitant]
     Active Substance: ARIPIPRAZOLE
  6. BUPROPION. [Concomitant]
     Active Substance: BUPROPION
  7. NUVIGIL [Concomitant]
     Active Substance: ARMODAFINIL
  8. VITAMIN D3 [Concomitant]
     Active Substance: CHOLECALCIFEROL
  9. TESTOSTERONE. [Concomitant]
     Active Substance: TESTOSTERONE
  10. FLUOXETIN [Concomitant]
     Active Substance: FLUOXETINE HYDROCHLORIDE
  11. IMBRUVICA [Suspect]
     Active Substance: IBRUTINIB
     Indication: CHRONIC LYMPHOCYTIC LEUKAEMIA
     Route: 048
     Dates: start: 20170313, end: 201706
  12. DETROL LA [Concomitant]
     Active Substance: TOLTERODINE TARTRATE
  13. PROAIR HFA [Concomitant]
     Active Substance: ALBUTEROL SULFATE
  14. IMBRUVICA [Suspect]
     Active Substance: IBRUTINIB
     Indication: CHRONIC LYMPHOCYTIC LEUKAEMIA
     Route: 048
     Dates: start: 20161026
  15. OMEPRAZOLE. [Concomitant]
     Active Substance: OMEPRAZOLE

REACTIONS (14)
  - Back disorder [Not Recovered/Not Resolved]
  - Flatulence [Not Recovered/Not Resolved]
  - Arthropathy [Not Recovered/Not Resolved]
  - Gastric disorder [Recovered/Resolved]
  - White blood cell count abnormal [Not Recovered/Not Resolved]
  - Vertigo [Not Recovered/Not Resolved]
  - Constipation [Not Recovered/Not Resolved]
  - White blood cell count decreased [Not Recovered/Not Resolved]
  - Energy increased [Not Recovered/Not Resolved]
  - Nausea [Not Recovered/Not Resolved]
  - Dizziness [Not Recovered/Not Resolved]
  - Erythema nodosum [Not Recovered/Not Resolved]
  - Diarrhoea [Not Recovered/Not Resolved]
  - Lymphocytosis [Recovering/Resolving]

NARRATIVE: CASE EVENT DATE: 20170611
